FAERS Safety Report 9570815 (Version 1)
Quarter: 2013Q4

REPORT INFORMATION
  Report Type: Report from Study
  Country: US (occurrence: US)
  Receive Date: 20131001
  Receipt Date: 20131001
  Transmission Date: 20140711
  Serious: Yes (Death)
  Sender: FDA-Public Use
  Company Number: US-ALEXION PHARMACEUTICALS INC.-A201302447

PATIENT
  Age: 51 Year
  Sex: Female

DRUGS (2)
  1. SOLIRIS [Suspect]
     Indication: SMALL INTESTINE TRANSPLANT
     Dosage: UNK
     Route: 042
     Dates: start: 20120620, end: 20120620
  2. SOLIRIS [Suspect]
     Indication: OFF LABEL USE

REACTIONS (1)
  - Death [Fatal]
